FAERS Safety Report 11764140 (Version 2)
Quarter: 2015Q4

REPORT INFORMATION
  Report Type: Spontaneous
  Country: US (occurrence: US)
  Receive Date: 20151120
  Receipt Date: 20151211
  Transmission Date: 20160304
  Serious: No
  Sender: FDA-Public Use
  Company Number: US-ELI_LILLY_AND_COMPANY-US201304000578

PATIENT
  Sex: Female

DRUGS (2)
  1. FORTEO [Suspect]
     Active Substance: TERIPARATIDE
     Indication: OSTEOPOROSIS
     Dosage: UNK, QD
     Route: 065
  2. FORTEO [Suspect]
     Active Substance: TERIPARATIDE
     Dosage: UNK, QD
     Route: 065

REACTIONS (4)
  - Hypersensitivity [Unknown]
  - Malaise [Not Recovered/Not Resolved]
  - Lumbar vertebral fracture [Recovering/Resolving]
  - Aphonia [Unknown]
